FAERS Safety Report 8434953-1 (Version None)
Quarter: 2012Q2

REPORT INFORMATION
  Report Type: 
  Country: None (occurrence: None)
  Receive Date: 20120614
  Receipt Date: 20120606
  Transmission Date: 20120825
  Serious: No
  Sender: FDA-Public Use
  Company Number: US-PFIZER INC-2012098543

PATIENT
  Sex: Female
  Weight: 52.154 kg

DRUGS (5)
  1. DITROPAN [Concomitant]
     Indication: HYPERTONIC BLADDER
     Dosage: UNK
  2. VESICARE [Concomitant]
     Indication: HYPERTONIC BLADDER
     Dosage: 10 MG, UNK
  3. DETROL LA [Suspect]
     Indication: HYPERTONIC BLADDER
     Dosage: 4 MG, UNK
     Dates: end: 20030101
  4. ENABLEX [Concomitant]
     Indication: HYPERTONIC BLADDER
     Dosage: 15 MG, UNK
  5. REQUIP [Suspect]
     Indication: RESTLESS LEGS SYNDROME
     Dosage: UNK

REACTIONS (3)
  - RESTLESS LEGS SYNDROME [None]
  - DRUG INEFFECTIVE [None]
  - DYSPEPSIA [None]
